FAERS Safety Report 9232739 (Version 1)
Quarter: 2013Q2

REPORT INFORMATION
  Report Type: Spontaneous
  Country: US (occurrence: None)
  Receive Date: 20130415
  Receipt Date: 20130415
  Transmission Date: 20140414
  Serious: Yes (Disabling)
  Sender: FDA-Public Use
  Company Number: None

PATIENT
  Age: 70 Year
  Sex: Female
  Weight: 76.2 kg

DRUGS (2)
  1. CIPROFLOXACIN [Suspect]
     Indication: URINARY TRACT INFECTION
     Dates: start: 20121227
  2. PREDNISONE [Suspect]
     Indication: NASOPHARYNGITIS

REACTIONS (2)
  - Pain in extremity [None]
  - Arthralgia [None]
